FAERS Safety Report 9398762 (Version 1)
Quarter: 2013Q3

REPORT INFORMATION
  Report Type: Spontaneous
  Country: BR (occurrence: BR)
  Receive Date: 20130712
  Receipt Date: 20130712
  Transmission Date: 20140515
  Serious: Yes (Hospitalization)
  Sender: FDA-Public Use
  Company Number: BR-MERCK-1306BRA001136

PATIENT
  Age: 18 Month
  Sex: Male
  Weight: 11 kg

DRUGS (2)
  1. SINGULAIR [Suspect]
     Dosage: UNK, UNKNOWN
     Route: 048
     Dates: start: 2013
  2. SINGULAIR [Suspect]
     Dosage: UNK
     Route: 048
     Dates: start: 20130701

REACTIONS (9)
  - H1N1 influenza [Recovered/Resolved]
  - Bronchopneumonia [Recovered/Resolved]
  - Dyspnoea [Recovered/Resolved]
  - Pyrexia [Recovered/Resolved]
  - Sinusitis [Recovering/Resolving]
  - Anaemia [Recovered/Resolved]
  - Diarrhoea [Recovered/Resolved]
  - Drug administration error [Unknown]
  - Off label use [Unknown]
